FAERS Safety Report 7120088-7 (Version None)
Quarter: 2010Q4

REPORT INFORMATION
  Report Type: 
  Country: None (occurrence: None)
  Receive Date: 20101123
  Receipt Date: 20101108
  Transmission Date: 20110411
  Serious: Yes (Hospitalization)
  Sender: FDA-Public Use
  Company Number: US-GENENTECH-307540

PATIENT
  Sex: Female
  Weight: 63 kg

DRUGS (11)
  1. RITUXIMAB [Suspect]
     Indication: B-CELL LYMPHOMA
     Dosage: 600 MG, UNK
     Route: 042
     Dates: start: 20100330
  2. BEVACIZUMAB [Suspect]
     Indication: B-CELL LYMPHOMA
     Dosage: 639 MG, UNK
     Route: 042
     Dates: start: 20100401
  3. AMBIEN [Concomitant]
     Indication: INSOMNIA
     Dosage: 5 MG, PRN
     Dates: start: 20091201
  4. PRILOSEC [Concomitant]
     Indication: IRRITABLE BOWEL SYNDROME
     Dosage: UNK
     Dates: start: 20090501
  5. PREDNISONE [Concomitant]
     Indication: RHEUMATOID ARTHRITIS
     Dosage: UNK
     Dates: start: 20000101
  6. BENTYL [Concomitant]
     Indication: IRRITABLE BOWEL SYNDROME
     Dosage: 20 MG, PRN
     Dates: start: 20050101
  7. METHOTREXATE [Concomitant]
     Indication: RHEUMATOID ARTHRITIS
     Dosage: 20 MG, UNK
     Dates: start: 20050101
  8. ELAVIL [Concomitant]
     Indication: FIBROMYALGIA
     Dosage: UNK
     Dates: start: 20020101
  9. THYROID [Concomitant]
     Indication: HYPOTHYROIDISM
     Dosage: 133.7 A?G, UNK
     Dates: start: 19480101
  10. ADVAIR DISKUS 100/50 [Concomitant]
     Indication: ASTHMA
     Dosage: 250 MG, PRN
     Dates: start: 20000101
  11. SINGULAIR [Concomitant]
     Indication: ASTHMA
     Dosage: UNK
     Dates: start: 19900101

REACTIONS (1)
  - INTRA-ABDOMINAL HAEMATOMA [None]
